FAERS Safety Report 10073200 (Version 1)
Quarter: 2014Q2

REPORT INFORMATION
  Report Type: Spontaneous
  Country: CO (occurrence: CO)
  Receive Date: 20140411
  Receipt Date: 20140411
  Transmission Date: 20141212
  Serious: Yes (Other)
  Sender: FDA-Public Use
  Company Number: CO-PFIZER INC-2014102311

PATIENT
  Age: 82 Year
  Sex: Male

DRUGS (4)
  1. NORVAS [Suspect]
     Indication: AORTIC OCCLUSION
     Dosage: 5 MG, 1X/DAY
     Route: 048
     Dates: start: 2009
  2. LAMICTAL [Concomitant]
     Indication: AORTIC OCCLUSION
     Dosage: 100 MG, UNK
  3. APROVEL [Concomitant]
     Indication: AORTIC OCCLUSION
     Dosage: 300 MG, UNK
  4. XANAX [Concomitant]
     Indication: AORTIC OCCLUSION
     Dosage: 0.25 MG, UNK

REACTIONS (1)
  - Cardiac pacemaker insertion [Recovered/Resolved]
